FAERS Safety Report 5878966-2 (Version None)
Quarter: 2008Q3

REPORT INFORMATION
  Report Type: 
  Country: None (occurrence: None)
  Receive Date: 20080911
  Receipt Date: 20080911
  Transmission Date: 20090109
  Serious: Yes (Hospitalization)
  Sender: FDA-Public Use
  Company Number: None

PATIENT
  Age: 69 Year
  Sex: Male
  Weight: 68 kg

DRUGS (10)
  1. GAMMAGARD LIQUID [Suspect]
     Indication: MYASTHENIA GRAVIS
     Dates: start: 20080529
  2. ASPIRIN [Concomitant]
  3. CENTRUM SILVER [Concomitant]
  4. FLAXSEED OIL [Concomitant]
  5. FLUCONAZOLE [Concomitant]
  6. FLUOXETINE [Concomitant]
  7. HYDROXYCHLOROQUINE [Concomitant]
  8. PREDNISONE [Concomitant]
  9. BACTRIM DS [Concomitant]
  10. VIT B COMPLEX/VIT C [Concomitant]

REACTIONS (4)
  - CHEST PAIN [None]
  - NAUSEA [None]
  - PAIN IN EXTREMITY [None]
  - TREMOR [None]
